FAERS Safety Report 7917668-5 (Version None)
Quarter: 2011Q4

REPORT INFORMATION
  Report Type: 
  Country: None (occurrence: None)
  Receive Date: 20111116
  Receipt Date: 20111110
  Transmission Date: 20120403
  Serious: Yes (Hospitalization)
  Sender: FDA-Public Use
  Company Number: JP-SANOFI-AVENTIS-2011SA074680

PATIENT
  Age: 50 Year
  Sex: Female

DRUGS (3)
  1. DOCETAXEL [Suspect]
     Route: 065
     Dates: start: 20111109
  2. TRASTUZUMAB [Concomitant]
     Dates: start: 20111109
  3. DOCETAXEL [Suspect]
     Route: 065

REACTIONS (1)
  - RESPIRATORY FAILURE [None]
